FAERS Safety Report 5423678-2 (Version None)
Quarter: 2007Q3

REPORT INFORMATION
  Report Type: 
  Country: None (occurrence: None)
  Receive Date: 20070823
  Receipt Date: 20070814
  Transmission Date: 20080115
  Serious: No
  Sender: FDA-Public Use
  Company Number: B0482991A

PATIENT
  Sex: Female

DRUGS (1)
  1. SENSODYNE-F [Suspect]
     Dates: start: 20070801, end: 20070803

REACTIONS (2)
  - CHEILITIS [None]
  - STOMATITIS [None]
